FAERS Safety Report 6646065-8 (Version None)
Quarter: 2010Q1

REPORT INFORMATION
  Report Type: 
  Country: None (occurrence: None)
  Receive Date: 20100323
  Receipt Date: 20100317
  Transmission Date: 20100710
  Serious: Yes (Life-Threatening, Hospitalization, Other)
  Sender: FDA-Public Use
  Company Number: CA-SANOFI-AVENTIS-2010SA009841

PATIENT
  Age: 53 Year
  Sex: Female
  Weight: 59.1 kg

DRUGS (16)
  1. DOCETAXEL [Suspect]
     Indication: NON-SMALL CELL LUNG CANCER
     Route: 041
     Dates: start: 20091221, end: 20091221
  2. DOCETAXEL [Suspect]
     Route: 041
     Dates: start: 20100113, end: 20100113
  3. BLINDED THERAPY [Suspect]
     Indication: NON-SMALL CELL LUNG CANCER
  4. DEXAMETHASONE [Concomitant]
     Indication: PROPHYLAXIS
     Route: 048
     Dates: start: 20091220, end: 20100101
  5. HYDROMORPHONE HCL [Concomitant]
     Route: 048
     Dates: start: 20091208
  6. CLONAZEPAM [Concomitant]
     Indication: INSOMNIA
     Route: 048
     Dates: start: 20090417
  7. NORTRIPTYLINE HCL [Concomitant]
     Indication: ANXIETY
     Route: 048
     Dates: start: 20090626
  8. FENTANYL [Concomitant]
     Indication: BACK PAIN
     Route: 062
     Dates: start: 20090806, end: 20100113
  9. COLACE [Concomitant]
     Indication: CONSTIPATION
     Route: 048
     Dates: start: 20090626
  10. SENOKOT /UNK/ [Concomitant]
     Indication: CONSTIPATION
     Route: 048
     Dates: start: 20090626
  11. ZINC [Concomitant]
     Route: 048
     Dates: start: 20090903
  12. ROBITUSSIN MAXIMUM STRENGTH COUGH [Concomitant]
     Route: 048
     Dates: start: 20090903, end: 20100113
  13. DOMPERIDONE [Concomitant]
     Indication: NAUSEA
     Route: 048
     Dates: start: 20090910
  14. ZOFRAN [Concomitant]
     Indication: NAUSEA
     Route: 048
     Dates: start: 20091221, end: 20100101
  15. ZOFRAN [Concomitant]
     Indication: VOMITING
     Route: 048
     Dates: start: 20091221, end: 20100101
  16. OXYGEN [Concomitant]
     Route: 045
     Dates: start: 20090910

REACTIONS (5)
  - ARRHYTHMIA [None]
  - CARDIAC ARREST [None]
  - HYPOTENSION [None]
  - LUNG DISORDER [None]
  - RESTLESSNESS [None]
